FAERS Safety Report 7903391-X (Version None)
Quarter: 2011Q4

REPORT INFORMATION
  Report Type: 
  Country: None (occurrence: None)
  Receive Date: 20111109
  Receipt Date: 20111102
  Transmission Date: 20120403
  Serious: No
  Sender: FDA-Public Use
  Company Number: US-AMGEN-USASP2011041368

PATIENT
  Age: 16 Year
  Sex: Female

DRUGS (12)
  1. CALCIUM [Concomitant]
     Dosage: 500 MG, UNK
  2. VICODIN [Concomitant]
     Indication: PAIN
     Dosage: 500MG-5MG EVERY FOUR TO SIX HOURS AS NEEDED
  3. VITAMIN D [Concomitant]
     Dosage: 1000 IU, QD
  4. CIMZIA [Concomitant]
     Dosage: 1 EVERY FOUR WEEKS
     Route: 058
  5. PREDNISONE [Concomitant]
     Dosage: 5 MG, QD AT NIGHT
  6. AZULFIDINE [Concomitant]
     Dosage: 500 MG, 2 TABLETS BID
  7. FERROUS SULFATE TAB [Concomitant]
     Dosage: 325 MG, 2 TABS ONCE A DAY
  8. METHOTREXATE [Concomitant]
     Dosage: 2.5 MG, UNK
     Route: 048
  9. ASACOL [Concomitant]
  10. ENBREL [Suspect]
     Indication: RHEUMATOID ARTHRITIS
     Dosage: 50 MG, Q3WK
     Dates: start: 20040101
  11. RELAFEN [Concomitant]
     Dosage: 500 MG, QD
  12. CELEBREX [Concomitant]
     Dosage: 200 MG, BID
     Route: 048

REACTIONS (8)
  - CONSTIPATION [None]
  - CHEST PAIN [None]
  - MENISCUS LESION [None]
  - RHEUMATOID ARTHRITIS [None]
  - FATIGUE [None]
  - PALLOR [None]
  - COLITIS ULCERATIVE [None]
  - PAIN [None]
